FAERS Safety Report 8801961 (Version 1)
Quarter: 2012Q4

REPORT INFORMATION
  Report Type: 
  Country: PR (occurrence: PR)
  Receive Date: 20120921
  Receipt Date: 20120921
  Transmission Date: 20130627
  Serious: No
  Sender: FDA-Public Use
  Company Number: PR-BAYER-2012-086227

PATIENT

DRUGS (3)
  1. CIPROFLOXACIN [Suspect]
  2. LEVAQUIN [Suspect]
  3. AVELOX [Suspect]

REACTIONS (1)
  - Photosensitivity reaction [None]
